FAERS Safety Report 7919006-0 (Version None)
Quarter: 2011Q4

REPORT INFORMATION
  Report Type: 
  Country: None (occurrence: None)
  Receive Date: 20111116
  Receipt Date: 20111107
  Transmission Date: 20120403
  Serious: Yes (Other)
  Sender: FDA-Public Use
  Company Number: CA-ASTRAZENECA-2011SE67248

PATIENT
  Age: 69 Year
  Sex: Female
  Weight: 65.8 kg

DRUGS (7)
  1. ASPIRIN [Concomitant]
     Route: 048
  2. BISOPROLOL FUMARATE [Concomitant]
     Route: 048
  3. CRESTOR [Suspect]
     Route: 048
  4. FISH OIL [Concomitant]
     Route: 048
  5. ASCORBIC ACID [Concomitant]
     Route: 048
  6. CRESTOR [Suspect]
     Route: 048
  7. PLAVIX [Concomitant]
     Route: 048

REACTIONS (14)
  - INFLUENZA LIKE ILLNESS [None]
  - OEDEMA PERIPHERAL [None]
  - PAIN OF SKIN [None]
  - LENTIGO [None]
  - INCREASED UPPER AIRWAY SECRETION [None]
  - MUSCULOSKELETAL STIFFNESS [None]
  - HYPOAESTHESIA [None]
  - PRODUCTIVE COUGH [None]
  - SKIN EXFOLIATION [None]
  - URINARY TRACT DISORDER [None]
  - LIVER FUNCTION TEST ABNORMAL [None]
  - ASTHENIA [None]
  - SKIN CHAPPED [None]
  - ALOPECIA [None]
